FAERS Safety Report 6505229-4 (Version None)
Quarter: 2009Q4

REPORT INFORMATION
  Report Type: 
  Country: None (occurrence: None)
  Receive Date: 20091218
  Receipt Date: 20091210
  Transmission Date: 20100525
  Serious: Yes (Other)
  Sender: FDA-Public Use
  Company Number: DK-JNJFOC-20091203723

PATIENT
  Age: 12 Year
  Sex: Male

DRUGS (11)
  1. CONCERTA [Suspect]
     Indication: DRUG USE FOR UNKNOWN INDICATION
     Route: 048
  2. CONCERTA [Suspect]
     Route: 048
  3. CONCERTA [Suspect]
     Route: 048
  4. CONCERTA [Suspect]
     Route: 048
  5. CONCERTA [Suspect]
     Route: 048
  6. RITALIN [Suspect]
     Indication: DRUG USE FOR UNKNOWN INDICATION
     Route: 065
  7. RITALIN [Suspect]
     Dosage: 5MG IN THE MORNING AND POSSIBLY  5MG IN THE AFTERNOONS
     Route: 065
  8. RITALIN [Suspect]
     Dosage: IN THE AFTERNOONS WHEN NEEDED
     Route: 065
  9. RITALIN [Suspect]
     Dosage: 5+5+5MG
     Route: 065
  10. RITALIN [Suspect]
     Dosage: 10+10+5MG
     Route: 065
  11. RITALIN [Suspect]
     Dosage: 5+5+5 MG
     Route: 065

REACTIONS (8)
  - AGGRESSION [None]
  - DRUG INEFFECTIVE [None]
  - FRUSTRATION [None]
  - HEADACHE [None]
  - IRRITABILITY [None]
  - RESTLESSNESS [None]
  - SENSORY DISTURBANCE [None]
  - THINKING ABNORMAL [None]
